FAERS Safety Report 6787687-3 (Version None)
Quarter: 2010Q2

REPORT INFORMATION
  Report Type: 
  Country: None (occurrence: None)
  Receive Date: 20100623
  Receipt Date: 20070619
  Transmission Date: 20101027
  Serious: No
  Sender: FDA-Public Use
  Company Number: US-PFIZER INC-2007051072

PATIENT
  Sex: Female
  Weight: 55 kg

DRUGS (1)
  1. DEPO-PROVERA SUSPENSION/INJ [Suspect]
     Indication: CONTRACEPTION
     Dates: start: 20050101

REACTIONS (1)
  - BLOOD THYROID STIMULATING HORMONE DECREASED [None]
